FAERS Safety Report 5949440-X (Version None)
Quarter: 2008Q4

REPORT INFORMATION
  Report Type: 
  Country: None (occurrence: None)
  Receive Date: 20081112
  Receipt Date: 20081103
  Transmission Date: 20090506
  Serious: Yes (Other)
  Sender: FDA-Public Use
  Company Number: PHHY2008IT27289

PATIENT
  Sex: Female

DRUGS (8)
  1. FEMARA [Suspect]
     Dosage: 2.5 MG, QD
     Route: 048
     Dates: start: 20070903, end: 20081002
  2. FUROSEMIDE [Concomitant]
     Dosage: 50 MG, UNK
     Route: 048
  3. TOLTERODINE TARTRATE [Concomitant]
     Dosage: 4 MG, UNK
     Route: 048
  4. VERAPAMIL [Concomitant]
     Dosage: 160 MG, UNK
     Route: 048
  5. LANOXIN [Concomitant]
     Dosage: 0.125 MG, UNK
     Route: 048
  6. THEO-DUR [Concomitant]
     Dosage: 300 MG, UNK
     Route: 048
  7. CIPRALEX [Concomitant]
     Dosage: 10 MG, UNK
     Route: 048
  8. KANRENOL [Concomitant]
     Dosage: 50 MG, UNK
     Route: 048

REACTIONS (1)
  - PHOTOSENSITIVITY REACTION [None]
